FAERS Safety Report 24302044 (Version 3)
Quarter: 2024Q3

REPORT INFORMATION
  Report Type: Report from Study
  Country: US (occurrence: US)
  Receive Date: 20240910
  Receipt Date: 20240925
  Transmission Date: 20241017
  Serious: Yes (Hospitalization, Other)
  Sender: PFIZER
  Company Number: US-PFIZER INC-202400247790

PATIENT
  Age: 46 Year
  Sex: Female
  Weight: 78.005 kg

DRUGS (9)
  1. TUKYSA [Suspect]
     Active Substance: TUCATINIB
     Dosage: 300 MG BY MOUTH TWICE DAILY
     Route: 048
     Dates: start: 20240828, end: 20240904
  2. TUKYSA [Suspect]
     Active Substance: TUCATINIB
     Dosage: 300 MG BY MOUTH TWICE DAILY
     Route: 048
     Dates: start: 20240906
  3. ELIQUIS [Concomitant]
     Active Substance: APIXABAN
     Dosage: UNK
  4. LASIX [Concomitant]
     Active Substance: FUROSEMIDE
     Dosage: UNK
  5. JARDIANCE [Concomitant]
     Active Substance: EMPAGLIFLOZIN
     Dosage: UNK
  6. LOSARTAN [Concomitant]
     Active Substance: LOSARTAN\LOSARTAN POTASSIUM
     Dosage: UNK
  7. METOPROLOL SUCCINATE [Concomitant]
     Active Substance: METOPROLOL SUCCINATE
     Dosage: UNK
  8. POTASSIUM CHLORIDE EXTENDED RELEASE [Concomitant]
     Active Substance: POTASSIUM CHLORIDE
     Dosage: UNK
  9. FERROUS SULFATE [Concomitant]
     Active Substance: FERROUS SULFATE
     Dosage: UNK

REACTIONS (5)
  - Thrombosis [Recovering/Resolving]
  - Neuropathy peripheral [Not Recovered/Not Resolved]
  - Paraesthesia [Recovering/Resolving]
  - Diarrhoea [Recovering/Resolving]
  - Pain in extremity [Not Recovered/Not Resolved]

NARRATIVE: CASE EVENT DATE: 20240801
